FAERS Safety Report 23542568 (Version 4)
Quarter: 2024Q1

REPORT INFORMATION
  Report Type: Spontaneous
  Country: JP (occurrence: JP)
  Receive Date: 20240220
  Receipt Date: 20240320
  Transmission Date: 20240410
  Serious: Yes (Hospitalization, Other)
  Sender: FDA-Public Use
  Company Number: JP-GSKNCCC-Case-01915276_AE-80350

PATIENT
  Age: 57 Year
  Sex: Male

DRUGS (4)
  1. BOTOX [Suspect]
     Active Substance: ONABOTULINUMTOXINA
     Indication: Facial spasm
     Dosage: TIME INTERVAL: AS NECESSARY: UNK
     Route: 065
     Dates: start: 200707, end: 200707
  2. BOTOX [Suspect]
     Active Substance: ONABOTULINUMTOXINA
     Indication: Facial spasm
     Dosage: TIME INTERVAL: AS NECESSARY: 20 INTERNATIONAL UNIT, EVERY 4 MONTHS
     Route: 065
  3. BOTOX [Suspect]
     Active Substance: ONABOTULINUMTOXINA
     Indication: Facial spasm
     Dosage: TIME INTERVAL: AS NECESSARY: 15IU, EVERY 4 MONTHS
     Route: 030
     Dates: start: 20231023, end: 20231023
  4. BOTOX [Suspect]
     Active Substance: ONABOTULINUMTOXINA
     Indication: Facial spasm
     Dosage: TIME INTERVAL: AS NECESSARY: 15 IU, EVERY 4 MONTHS
     Route: 030
     Dates: start: 201403, end: 201403

REACTIONS (8)
  - Dermatomyositis [Recovering/Resolving]
  - Interstitial lung disease [Recovering/Resolving]
  - Cough [Recovering/Resolving]
  - Peripheral swelling [Recovering/Resolving]
  - Myalgia [Recovering/Resolving]
  - Arthritis [Recovering/Resolving]
  - Rash erythematous [Recovering/Resolving]
  - Rash papular [Recovering/Resolving]

NARRATIVE: CASE EVENT DATE: 20230501
